FAERS Safety Report 23096701 (Version 5)
Quarter: 2023Q4

REPORT INFORMATION
  Report Type: Spontaneous
  Country: US (occurrence: US)
  Receive Date: 20231023
  Receipt Date: 20231204
  Transmission Date: 20240109
  Serious: Yes (Hospitalization, Other)
  Sender: FDA-Public Use
  Company Number: US-PFIZER INC-PV202200129930

PATIENT
  Age: 77 Year
  Sex: Female

DRUGS (1)
  1. IBRANCE [Suspect]
     Active Substance: PALBOCICLIB
     Dosage: 7 DAYS ON 7 DAYS OFF, REPEAT
     Route: 048

REACTIONS (3)
  - Hip fracture [Unknown]
  - Off label use [Unknown]
  - Product use issue [Unknown]
